FAERS Safety Report 25327043 (Version 2)
Quarter: 2025Q2

REPORT INFORMATION
  Report Type: Spontaneous
  Country: US (occurrence: US)
  Receive Date: 20250517
  Receipt Date: 20250523
  Transmission Date: 20250716
  Serious: No
  Sender: SANOFI AVENTIS
  Company Number: US-SA-2025SA140686

PATIENT
  Sex: Female

DRUGS (32)
  1. KEVZARA [Suspect]
     Active Substance: SARILUMAB
     Indication: Psoriatic arthropathy
     Dosage: 200 MG, QOW
     Route: 058
  2. CLONAZEPAM [Concomitant]
     Active Substance: CLONAZEPAM
  3. TRAZODONE HCL [Concomitant]
     Active Substance: TRAZODONE HYDROCHLORIDE
  4. AMMONIUM LACTATE [Concomitant]
     Active Substance: AMMONIUM LACTATE
  5. CLOTRIMAZOLE [Concomitant]
     Active Substance: CLOTRIMAZOLE
  6. FLUOXETINE [Concomitant]
     Active Substance: FLUOXETINE HYDROCHLORIDE
  7. IBUPROFEN [Concomitant]
     Active Substance: IBUPROFEN
  8. MOUNJARO [Concomitant]
     Active Substance: TIRZEPATIDE
  9. NOVOLOG [Concomitant]
     Active Substance: INSULIN ASPART
  10. QUETIAPINE FUMARATE [Concomitant]
     Active Substance: QUETIAPINE FUMARATE
  11. TYLENOL EXTRA STRENGTH [Concomitant]
     Active Substance: ACETAMINOPHEN
  12. VITAMIN D NOS [Concomitant]
     Active Substance: CHOLECALCIFEROL\ERGOCALCIFEROL
  13. AMLODIPINE BESYLATE [Concomitant]
     Active Substance: AMLODIPINE BESYLATE
  14. CARVEDILOL [Concomitant]
     Active Substance: CARVEDILOL
  15. CLONAZEPAM [Concomitant]
     Active Substance: CLONAZEPAM
  16. CLONIDINE HYDROCHLORIDE [Concomitant]
     Active Substance: CLONIDINE HYDROCHLORIDE
  17. DULOXETINE HYDROCHLORIDE [Concomitant]
     Active Substance: DULOXETINE HYDROCHLORIDE
  18. EZETIMIBE [Concomitant]
     Active Substance: EZETIMIBE
  19. FOLIC ACID [Concomitant]
     Active Substance: FOLIC ACID
  20. GABAPENTIN [Concomitant]
     Active Substance: GABAPENTIN
  21. HYDROCHLOROTHIAZIDE [Concomitant]
     Active Substance: HYDROCHLOROTHIAZIDE
  22. JARDIANCE [Concomitant]
     Active Substance: EMPAGLIFLOZIN
  23. LOSARTAN POTASSIUM [Concomitant]
     Active Substance: LOSARTAN POTASSIUM
  24. MELATONIN [Concomitant]
     Active Substance: MELATONIN
  25. ONDANSETRON [Concomitant]
     Active Substance: ONDANSETRON
  26. PANTOPRAZOLE [Concomitant]
     Active Substance: PANTOPRAZOLE
  27. PRAVASTATIN [Concomitant]
     Active Substance: PRAVASTATIN
  28. SUCRALFATE [Concomitant]
     Active Substance: SUCRALFATE
  29. TRULANCE [Concomitant]
     Active Substance: PLECANATIDE
  30. VASCEPA [Concomitant]
     Active Substance: ICOSAPENT ETHYL
  31. INFED [Concomitant]
     Active Substance: IRON DEXTRAN
  32. SODIUM CHLORIDE [Concomitant]
     Active Substance: SODIUM CHLORIDE

REACTIONS (15)
  - Pruritus [Not Recovered/Not Resolved]
  - Alopecia [Not Recovered/Not Resolved]
  - Rhinorrhoea [Not Recovered/Not Resolved]
  - Sneezing [Not Recovered/Not Resolved]
  - Fatigue [Not Recovered/Not Resolved]
  - Decreased appetite [Not Recovered/Not Resolved]
  - Disturbance in attention [Not Recovered/Not Resolved]
  - Spinal disorder [Not Recovered/Not Resolved]
  - Depressed mood [Not Recovered/Not Resolved]
  - Tachycardia [Not Recovered/Not Resolved]
  - Initial insomnia [Not Recovered/Not Resolved]
  - Asthenia [Not Recovered/Not Resolved]
  - Gait disturbance [Not Recovered/Not Resolved]
  - Spondylitis [Not Recovered/Not Resolved]
  - Drug ineffective for unapproved indication [Unknown]
